FAERS Safety Report 6711587-8 (Version None)
Quarter: 2010Q2

REPORT INFORMATION
  Report Type: 
  Country: None (occurrence: None)
  Receive Date: 20100505
  Receipt Date: 20100423
  Transmission Date: 20101027
  Serious: Yes (Hospitalization)
  Sender: FDA-Public Use
  Company Number: PHHY2008JP24653

PATIENT
  Sex: Male

DRUGS (16)
  1. ICL670A ICL+DISTAB [Suspect]
     Indication: MYELODYSPLASTIC SYNDROME
     Dosage: 500 MG/DAY
     Route: 048
     Dates: start: 20080902, end: 20080925
  2. ICL670A ICL+DISTAB [Suspect]
     Indication: IRON OVERLOAD
     Dosage: 500 MG/DAY
     Route: 048
     Dates: start: 20081105, end: 20090319
  3. ICL670A ICL+DISTAB [Suspect]
     Dosage: 1000 MG/DAY
     Route: 048
     Dates: start: 20090320, end: 20091010
  4. FLUITRAN [Concomitant]
     Dosage: 2 MG
     Route: 048
     Dates: start: 20081225, end: 20090402
  5. GASTER D [Concomitant]
     Dosage: 20 MG
     Route: 048
     Dates: end: 20081010
  6. PRIMOBOLAN [Concomitant]
     Dosage: 20 MG, UNK
     Route: 048
  7. CANDESARTAN CILEXETIL [Concomitant]
     Indication: HYPERTENSION
     Dosage: 8 MG
     Route: 048
     Dates: end: 20081006
  8. LOSARTAN POTASSIUM AND HYDROCHLOROTHIAZIDE [Concomitant]
     Indication: HYPERTENSION
     Dosage: 1 DF, UNK
     Route: 048
     Dates: start: 20081007, end: 20091010
  9. CRAVIT [Concomitant]
     Dosage: 200 MG, UNK
     Route: 048
     Dates: end: 20091010
  10. DIFLUCAN [Concomitant]
     Dosage: 200 MG, UNK
     Route: 048
     Dates: end: 20090205
  11. SULPERAZON [Concomitant]
     Indication: LIVER ABSCESS
     Dosage: 2 G, UNK
     Dates: start: 20080902, end: 20080905
  12. TARGOCID [Concomitant]
     Indication: LIVER ABSCESS
     Dosage: 200 MG, UNK
     Dates: start: 20080902, end: 20080910
  13. MEROPEN [Concomitant]
     Indication: LIVER ABSCESS
     Dosage: 1.0 G, UNK
     Dates: start: 20080905, end: 20080912
  14. NEUTROGIN [Concomitant]
     Indication: MYELODYSPLASTIC SYNDROME
     Dosage: 250 MG, UNK
     Dates: start: 20080905, end: 20080908
  15. CEFOTAX [Concomitant]
     Indication: LIVER ABSCESS
     Dosage: 2 G, UNK
     Dates: start: 20080913, end: 20080921
  16. PRODIF [Concomitant]
     Indication: LIVER ABSCESS
     Dosage: UNK
     Dates: start: 20080910, end: 20080921

REACTIONS (6)
  - BLOOD CREATININE INCREASED [None]
  - CONSTIPATION [None]
  - ENTEROCOLITIS [None]
  - NEUROPATHY PERIPHERAL [None]
  - RENAL DISORDER [None]
  - SEPSIS [None]
